FAERS Safety Report 7882975 (Version 2)
Quarter: 2014Q1

REPORT INFORMATION
  Report Type: Spontaneous
  Country: US (occurrence: US)
  Receive Date: 20110404
  Receipt Date: 20140121
  Transmission Date: 20141002
  Serious: No
  Sender: FDA-Public Use
  Company Number: US-JNJFOC-20110311836

PATIENT
  Age: 43 Year
  Sex: Female
  Weight: 51.26 kg

DRUGS (3)
  1. DURAGESIC [Suspect]
     Indication: PAIN
     Route: 062
     Dates: start: 200301, end: 2009
  2. DURAGESIC [Suspect]
     Indication: PAIN
     Dosage: NDC#50458-093-05
     Route: 062
     Dates: start: 2009
  3. SOMA [Concomitant]
     Indication: MUSCLE RELAXANT THERAPY
     Dosage: AS NEEDED
     Route: 048
     Dates: start: 200206

REACTIONS (7)
  - Product quality issue [Unknown]
  - Insomnia [Not Recovered/Not Resolved]
  - Intentional drug misuse [Not Recovered/Not Resolved]
  - Malaise [Not Recovered/Not Resolved]
  - Appetite disorder [Not Recovered/Not Resolved]
  - Drug dose omission [Not Recovered/Not Resolved]
  - Therapeutic response increased [Unknown]
